FAERS Safety Report 24857188 (Version 3)
Quarter: 2025Q1

REPORT INFORMATION
  Report Type: Spontaneous
  Country: US (occurrence: US)
  Receive Date: 20250117
  Receipt Date: 20250217
  Transmission Date: 20250408
  Serious: No
  Sender: ROCHE
  Company Number: US-ROCHE-10000173989

PATIENT
  Age: 19 Year
  Sex: Female

DRUGS (7)
  1. XOLAIR [Suspect]
     Active Substance: OMALIZUMAB
     Indication: Asthma
     Dosage: EVERY OTHER WEEK
     Route: 058
     Dates: start: 202304
  2. XOLAIR [Suspect]
     Active Substance: OMALIZUMAB
     Indication: Hypersensitivity
  3. XOLAIR [Suspect]
     Active Substance: OMALIZUMAB
     Indication: Hypersensitivity
     Dosage: EVERY OTHER WEEK, 150MG PFS IN EACH ARM, TOTAL DOSE 300MG
     Route: 058
     Dates: start: 2024
  4. XOLAIR [Suspect]
     Active Substance: OMALIZUMAB
     Indication: Asthma
  5. ANTI ALLERGY [Concomitant]
     Active Substance: CHLORPHENIRAMINE MALEATE
  6. INHALERIN [Concomitant]
  7. INSULIN NOS [Concomitant]
     Active Substance: INSULIN NOS

REACTIONS (5)
  - Product dose omission issue [Unknown]
  - Incorrect disposal of product [Unknown]
  - Pain [Unknown]
  - Device defective [Unknown]
  - Needle issue [Unknown]

NARRATIVE: CASE EVENT DATE: 20250104
